FAERS Safety Report 17760605 (Version 1)
Quarter: 2020Q2

REPORT INFORMATION
  Report Type: Spontaneous
  Country: US (occurrence: US)
  Receive Date: 20200508
  Receipt Date: 20200508
  Transmission Date: 20200714
  Serious: Yes (Hospitalization)
  Sender: FDA-Public Use
  Company Number: None

PATIENT
  Sex: Female

DRUGS (10)
  1. PHENZAZOPYRID [Concomitant]
  2. CLOBETASOL [Concomitant]
     Active Substance: CLOBETASOL
  3. ONDANSETRON [Concomitant]
     Active Substance: ONDANSETRON
  4. COLESTIPOL [Concomitant]
     Active Substance: COLESTIPOL
  5. TRIAMCINOLCON [Concomitant]
  6. NITROFURANTIN [Concomitant]
     Active Substance: NITROFURANTOIN
  7. COSENTYX [Suspect]
     Active Substance: SECUKINUMAB
     Indication: PSORIASIS
     Dosage: ?          OTHER FREQUENCY:ONCE EVERY 4 WEEKS;?
     Route: 058
     Dates: start: 20190713
  8. METOPORLOL [Concomitant]
  9. POT CHLORIDE [Concomitant]
     Active Substance: POTASSIUM CHLORIDE
  10. FUROSEMIDE. [Concomitant]
     Active Substance: FUROSEMIDE

REACTIONS (2)
  - Therapy interrupted [None]
  - Surgery [None]
